FAERS Safety Report 15766995 (Version 1)
Quarter: 2018Q4

REPORT INFORMATION
  Report Type: Spontaneous
  Country: DE (occurrence: DE)
  Receive Date: 20181227
  Receipt Date: 20181227
  Transmission Date: 20190205
  Serious: Yes (Other)
  Sender: FDA-Public Use
  Company Number: DE-ALLERGAN-1855142US

PATIENT
  Age: 44 Year
  Sex: Male
  Weight: 74 kg

DRUGS (4)
  1. DALBAVANCIN HCL UNK [Suspect]
     Active Substance: DALBAVANCIN HYDROCHLORIDE
     Indication: ENDOCARDITIS
     Dosage: 1000 MG, SINGLE
     Route: 042
     Dates: start: 20181204, end: 20181204
  2. FLUCONAZOL [Concomitant]
     Active Substance: FLUCONAZOLE
     Indication: POSTOPERATIVE WOUND INFECTION
     Dosage: 200 MG, BID
  3. LEVOFLOXACIN. [Concomitant]
     Active Substance: LEVOFLOXACIN
     Indication: ENDOCARDITIS STAPHYLOCOCCAL
     Dosage: 500 MG, BID
  4. DALBAVANCIN HCL UNK [Suspect]
     Active Substance: DALBAVANCIN HYDROCHLORIDE
     Dosage: 1500 MG, SINGLE
     Route: 042
     Dates: start: 20181120, end: 20181120

REACTIONS (2)
  - Renal impairment [Unknown]
  - Off label use [Unknown]
